FAERS Safety Report 23097514 (Version 1)
Quarter: 2023Q4

REPORT INFORMATION
  Report Type: Report from Study
  Country: US (occurrence: US)
  Receive Date: 20231023
  Receipt Date: 20231023
  Transmission Date: 20240109
  Serious: Yes (Other)
  Sender: FDA-Public Use
  Company Number: US-MYLANLABS-2023M1110344

PATIENT
  Age: 55 Year
  Sex: Male

DRUGS (17)
  1. ZOLOFT [Suspect]
     Active Substance: SERTRALINE HYDROCHLORIDE
     Indication: Product used for unknown indication
     Dosage: UNK
     Route: 065
  2. HYALURONIDASE [Suspect]
     Active Substance: HYALURONIDASE
     Indication: Immunodeficiency common variable
     Dosage: 35 GRAM,Q4W
     Route: 065
  3. COVID-19 VACCINE NOS [Suspect]
     Active Substance: COVID-19 VACCINE NOS
     Indication: Product used for unknown indication
     Dosage: UNK
     Route: 065
  4. EPINEPHRINE [Concomitant]
     Active Substance: EPINEPHRINE
     Dosage: UNK
     Route: 065
  5. FLUTICASONE PROPIONATE [Concomitant]
     Active Substance: FLUTICASONE PROPIONATE
     Dosage: UNK
     Route: 065
  6. METOPROLOL TARTRATE [Concomitant]
     Active Substance: METOPROLOL TARTRATE
     Indication: Product used for unknown indication
     Dosage: UNK
     Route: 065
  7. ACETAMINOPHEN [Concomitant]
     Active Substance: ACETAMINOPHEN
     Dosage: UNK
     Route: 065
  8. PSEUDOEPHEDRINE [Concomitant]
     Active Substance: PSEUDOEPHEDRINE
     Dosage: UNK
     Route: 065
  9. PRILOSEC [Concomitant]
     Active Substance: OMEPRAZOLE MAGNESIUM
     Dosage: UNK
     Route: 065
  10. SODIUM CHLORIDE [Concomitant]
     Active Substance: SODIUM CHLORIDE
     Dosage: UNK
     Route: 065
  11. IBUPROFEN [Concomitant]
     Active Substance: IBUPROFEN
     Dosage: UNK
     Route: 065
  12. LIDOCAINE [Concomitant]
     Active Substance: LIDOCAINE
     Dosage: UNK
     Route: 065
  13. BENADRYL [Concomitant]
     Active Substance: DIPHENHYDRAMINE HYDROCHLORIDE
     Dosage: UNK
     Route: 065
  14. KLONOPIN [Concomitant]
     Active Substance: CLONAZEPAM
     Dosage: UNK
     Route: 065
  15. VITAMINS [Concomitant]
     Active Substance: VITAMINS
     Dosage: UNK
     Route: 065
  16. FLONASE [Concomitant]
     Active Substance: FLUTICASONE PROPIONATE
     Dosage: UNK
     Route: 065
  17. HYDRALAZINE [Concomitant]
     Active Substance: HYDRALAZINE HYDROCHLORIDE
     Dosage: UNK
     Route: 065

REACTIONS (56)
  - Suicidal ideation [Unknown]
  - Brain injury [Unknown]
  - Sinusitis [Recovering/Resolving]
  - Misophonia [Unknown]
  - Hyperacusis [Unknown]
  - Superior semicircular canal dehiscence [Unknown]
  - Ear pain [Unknown]
  - Cold-stimulus headache [Unknown]
  - Somnolence [Unknown]
  - Ear disorder [Unknown]
  - Pain [Unknown]
  - Multiple allergies [Unknown]
  - Disturbance in attention [Unknown]
  - Ear discomfort [Unknown]
  - Seasonal allergy [Unknown]
  - Back disorder [Unknown]
  - Brain fog [Unknown]
  - Speech disorder [Unknown]
  - Depression [Unknown]
  - Sleep disorder [Unknown]
  - Sinus congestion [Unknown]
  - Perforation [Unknown]
  - Supraventricular tachycardia [Unknown]
  - Loss of personal independence in daily activities [Unknown]
  - Ear infection [Unknown]
  - General physical health deterioration [Unknown]
  - Illness anxiety disorder [Unknown]
  - Head discomfort [Unknown]
  - Movement disorder [Unknown]
  - Inner ear disorder [Unknown]
  - Insurance issue [Unknown]
  - Muscular weakness [Unknown]
  - Vertigo [Recovering/Resolving]
  - Heart rate increased [Unknown]
  - Irritability [Unknown]
  - Amnesia [Unknown]
  - Balance disorder [Unknown]
  - Decreased appetite [Unknown]
  - Anxiety [Unknown]
  - Infusion site haemorrhage [Unknown]
  - Injection site pain [Unknown]
  - Abdominal distension [Unknown]
  - Dizziness [Unknown]
  - Infusion site swelling [Unknown]
  - Blood pressure increased [Unknown]
  - Asthenia [Unknown]
  - Malaise [Unknown]
  - Fatigue [Unknown]
  - Headache [Unknown]
  - Tremor [Unknown]
  - Nausea [Unknown]
  - Device difficult to use [Unknown]
  - Device programming error [Unknown]
  - Product use issue [Unknown]
  - Product dose omission issue [Unknown]
  - Product use issue [Unknown]

NARRATIVE: CASE EVENT DATE: 20190101
